FAERS Safety Report 5007850-1 (Version None)
Quarter: 2006Q2

REPORT INFORMATION
  Report Type: 
  Country: None (occurrence: None)
  Receive Date: 20060522
  Receipt Date: 20060515
  Transmission Date: 20061013
  Serious: Yes (Other)
  Sender: FDA-Public Use
  Company Number: GB-JNJFOC-20060306306

PATIENT
  Age: 63 Year
  Sex: Male

DRUGS (13)
  1. RISPERDAL [Suspect]
     Route: 065
  2. RISPERDAL [Suspect]
     Route: 065
  3. RISPERDAL [Suspect]
     Route: 065
  4. RISPERDAL [Suspect]
     Route: 065
  5. RISPERDAL [Suspect]
     Route: 065
  6. RISPERDAL [Suspect]
     Indication: SCHIZOPHRENIA
     Dosage: 2MG MARNE, 1MG LUNCHTIME, 3MG NOCTE
     Route: 065
  7. LANZOPRAZOLE [Concomitant]
  8. TEMAZEPAM [Concomitant]
  9. PARACETAMOL [Concomitant]
  10. TRIHEXYPHENIDYL HCL [Concomitant]
  11. LOFEPRAMINE [Concomitant]
  12. PENICILLIN [Concomitant]
  13. SILDENIFIL [Concomitant]

REACTIONS (2)
  - ARRHYTHMIA [None]
  - MYOCARDIAL ISCHAEMIA [None]
